FAERS Safety Report 5468394-6 (Version None)
Quarter: 2007Q3

REPORT INFORMATION
  Report Type: 
  Country: None (occurrence: None)
  Receive Date: 20070921
  Receipt Date: 20070913
  Transmission Date: 20080115
  Serious: Yes (Life-Threatening)
  Sender: FDA-Public Use
  Company Number: TCI2007A04839

PATIENT
  Age: 66 Year
  Sex: Female

DRUGS (9)
  1. ACTOS [Suspect]
     Indication: DIABETES MELLITUS
     Dosage: 15 MG (15 MG, 1 D) PER ORAL
     Route: 048
     Dates: start: 20070131
  2. DIOVAN [Concomitant]
  3. NORVASC [Concomitant]
  4. FAMOTIDINE [Concomitant]
  5. PRAVASTATIN [Concomitant]
  6. MEDET                   (METFORMIN HYDROCHLORIDE) [Concomitant]
  7. EPADEL                   (ETHYL ICOSAPENTATE) [Concomitant]
  8. INSULIN [Concomitant]
  9. DIURETICS [Concomitant]

REACTIONS (3)
  - CARDIAC FAILURE [None]
  - DYSPNOEA [None]
  - PYREXIA [None]
